FAERS Safety Report 8577558-4 (Version None)
Quarter: 2012Q3

REPORT INFORMATION
  Report Type: 
  Country: None (occurrence: None)
  Receive Date: 20120807
  Receipt Date: 20120723
  Transmission Date: 20120928
  Serious: No
  Sender: FDA-Public Use
  Company Number: US-009507513-2012SP036498

PATIENT

DRUGS (1)
  1. CLARITIN REDITABS [Suspect]
     Indication: RHINORRHOEA
     Dosage: UNK UNK, UNKNOWN
     Route: 048
     Dates: start: 20120601

REACTIONS (1)
  - DRUG INEFFECTIVE [None]
